FAERS Safety Report 18343285 (Version 1)
Quarter: 2020Q4

REPORT INFORMATION
  Report Type: Spontaneous
  Country: US (occurrence: US)
  Receive Date: 20201001
  Receipt Date: 20201001
  Transmission Date: 20210113
  Serious: No
  Sender: FDA-Public Use
  Company Number: None

PATIENT
  Age: 66 Year
  Sex: Female
  Weight: 52.16 kg

DRUGS (2)
  1. TALTZ [Suspect]
     Active Substance: IXEKIZUMAB
     Indication: PSORIATIC ARTHROPATHY
     Dosage: INJECT 160MG (2PEN)S SUBCUTANEOUSLY  AT WEEK FOR 0 THEN 80MG (1 PEN) AT  WEEK 2 AS DIRECTED
     Route: 058
     Dates: start: 202009
  2. TALTZ [Suspect]
     Active Substance: IXEKIZUMAB
     Indication: PSORIASIS
     Dosage: INJECT 160MG (2PEN)S SUBCUTANEOUSLY  AT WEEK FOR 0 THEN 80MG (1 PEN) AT  WEEK 2 AS DIRECTED
     Route: 058
     Dates: start: 202009

REACTIONS (1)
  - Injection site erythema [None]
